FAERS Safety Report 25559200 (Version 1)
Quarter: 2025Q3

REPORT INFORMATION
  Report Type: Spontaneous
  Country: US (occurrence: US)
  Receive Date: 20250715
  Receipt Date: 20250715
  Transmission Date: 20251021
  Serious: No
  Sender: NOVO NORDISK
  Company Number: US-NOVOPROD-1454169

PATIENT
  Age: 66 Year
  Sex: Male

DRUGS (3)
  1. OZEMPIC [Suspect]
     Active Substance: SEMAGLUTIDE
     Indication: Type 2 diabetes mellitus
     Route: 058
     Dates: start: 2024
  2. OZEMPIC [Suspect]
     Active Substance: SEMAGLUTIDE
     Indication: Glycosylated haemoglobin
  3. METFORMIN [Concomitant]
     Active Substance: METFORMIN HYDROCHLORIDE
     Indication: Product used for unknown indication
     Dosage: 10 MG, BID

REACTIONS (1)
  - Drug intolerance [Not Recovered/Not Resolved]
